FAERS Safety Report 19772805 (Version 1)
Quarter: 2021Q3

REPORT INFORMATION
  Report Type: Spontaneous
  Country: US (occurrence: US)
  Receive Date: 20210830
  Receipt Date: 20210830
  Transmission Date: 20211014
  Serious: Yes (Hospitalization)
  Sender: FDA-Public Use
  Company Number: None

PATIENT
  Age: 65 Year
  Sex: Female

DRUGS (1)
  1. ENVARSUS XR [Suspect]
     Active Substance: TACROLIMUS
     Dosage: ?          OTHER FREQUENCY:N/A;?
     Route: 058
     Dates: start: 201912

REACTIONS (2)
  - Fall [None]
  - Hip arthroplasty [None]

NARRATIVE: CASE EVENT DATE: 20210723
